FAERS Safety Report 5607727-4 (Version None)
Quarter: 2008Q1

REPORT INFORMATION
  Report Type: 
  Country: None (occurrence: None)
  Receive Date: 20080125
  Receipt Date: 20080102
  Transmission Date: 20080703
  Serious: Yes (Other)
  Sender: FDA-Public Use
  Company Number: ENT 2007-0253

PATIENT
  Sex: Male

DRUGS (5)
  1. COMTAN [Suspect]
     Indication: PARKINSON'S DISEASE
     Dosage: 500 MG, ORAL; 100 MG, ORAL; 200 MG, ORAL
     Route: 048
     Dates: start: 20071001, end: 20071101
  2. COMTAN [Suspect]
     Indication: PARKINSON'S DISEASE
     Dosage: 500 MG, ORAL; 100 MG, ORAL; 200 MG, ORAL
     Route: 048
     Dates: start: 20071201, end: 20071201
  3. COMTAN [Suspect]
     Indication: PARKINSON'S DISEASE
     Dosage: 500 MG, ORAL; 100 MG, ORAL; 200 MG, ORAL
     Route: 048
     Dates: start: 20071201
  4. SYMMETREL [Suspect]
     Indication: PARKINSON'S DISEASE
     Dosage: ORAL
     Route: 048
     Dates: start: 20071001, end: 20071101
  5. LEVODOPA BENSERAZIDE HYDROCHLORIDE [Concomitant]

REACTIONS (5)
  - ALANINE AMINOTRANSFERASE INCREASED [None]
  - ASPARTATE AMINOTRANSFERASE INCREASED [None]
  - BLOOD ALKALINE PHOSPHATASE INCREASED [None]
  - GAMMA-GLUTAMYLTRANSFERASE INCREASED [None]
  - HEPATIC FUNCTION ABNORMAL [None]
